FAERS Safety Report 8488672-6 (Version None)
Quarter: 2012Q3

REPORT INFORMATION
  Report Type: 
  Country: None (occurrence: None)
  Receive Date: 20120705
  Receipt Date: 20120702
  Transmission Date: 20120928
  Serious: Yes (Other)
  Sender: FDA-Public Use
  Company Number: US-PFIZER INC-2012150187

PATIENT

DRUGS (16)
  1. PROVENTIL-HFA [Concomitant]
     Indication: WHEEZING
     Dosage: UNK, AS NEEDED, 2.5 MG/3 ML (0.083%) TAKE 3 ML BY NEBULIZATION EVERY 6 (SIX) HOURS
  2. WELCHOL [Concomitant]
     Dosage: 1250 MG, 2X/DAY (625 MG, 2 TABLETS 2 (TWO) TIMES DAILY WITH MEALS, 2 TABS TWICE DAILY)
     Route: 048
  3. DEPAKOTE [Concomitant]
     Dosage: 500 MG, 2X/DAY
     Route: 048
  4. VITAMIN B-12 [Concomitant]
     Indication: VITAMIN B12 DEFICIENCY
     Dosage: 2500 UG, PLACE ONE TABLET UNDER THE TONGUE DAILY
     Route: 060
  5. VENTOLIN HFA [Concomitant]
     Dosage: UNK, 4X/DAY, INHALE 2 PUFFS INTO LUNGS
  6. VASOTEC [Concomitant]
     Dosage: 10 MG, TAKE 1 TABLET DAILY
     Route: 048
  7. ELAVIL [Concomitant]
     Dosage: 100 MG, NIGHTLY
     Route: 048
  8. SYMBICORT [Concomitant]
     Dosage: 160-4.5 MCG, 2X/DAY, INHALE 2 PUFFS INTO LUNGS 2 (TWO) TIMES DAILY. RINSE MOUTH AFTER USE
  9. ASPIRIN [Concomitant]
     Dosage: 81 MG, DAILY
     Route: 048
  10. FLEXERIL [Concomitant]
     Indication: MUSCLE SPASMS
     Dosage: 10 MG, TAKE 1 TABLET BY MOUTH 3 TIMES DAILY AS NEEDED
     Route: 048
  11. ZETIA [Concomitant]
     Dosage: 10 MG, 1 TABLET DAILY
     Route: 048
  12. LYRICA [Suspect]
     Dosage: 75 MG, 3X/DAY
     Route: 048
  13. TENORMIN [Concomitant]
     Dosage: 25 MG, 2X/DAY (50 MG, TAKE 0.5 TABLETS 2 TIMES DAILY)
     Route: 048
  14. CYMBALTA [Concomitant]
     Dosage: 60 MG, TAKE 1 CAPSULE DAILY
     Route: 048
  15. VITAMIN D [Concomitant]
     Dosage: 5000 IU, DAILY
     Route: 048
  16. BISACODYL [Concomitant]
     Dosage: 5 MG, 2X/DAY
     Route: 048

REACTIONS (15)
  - TYPE 2 DIABETES MELLITUS [None]
  - NEUROPATHY PERIPHERAL [None]
  - DEPRESSION [None]
  - OEDEMA [None]
  - PAIN IN EXTREMITY [None]
  - VITAMIN B12 DEFICIENCY [None]
  - VITAMIN D DEFICIENCY [None]
  - ESSENTIAL HYPERTENSION [None]
  - BLOOD CHOLESTEROL INCREASED [None]
  - CONSTIPATION [None]
  - BIPOLAR I DISORDER [None]
  - GASTROOESOPHAGEAL REFLUX DISEASE [None]
  - BACK PAIN [None]
  - CHRONIC OBSTRUCTIVE PULMONARY DISEASE [None]
  - ANXIETY DISORDER [None]
